FAERS Safety Report 18911396 (Version 1)
Quarter: 2021Q1

REPORT INFORMATION
  Report Type: Spontaneous
  Country: US (occurrence: US)
  Receive Date: 20210218
  Receipt Date: 20210218
  Transmission Date: 20210420
  Serious: No
  Sender: FDA-Public Use
  Company Number: US-BIOGEN-2021BI00966330

PATIENT
  Sex: Female

DRUGS (1)
  1. VUMERITY [Suspect]
     Active Substance: DIROXIMEL FUMARATE
     Indication: MULTIPLE SCLEROSIS
     Route: 048

REACTIONS (9)
  - Abdominal distension [Recovered/Resolved]
  - Intentional product misuse [Unknown]
  - Abdominal discomfort [Unknown]
  - Hypersensitivity [Unknown]
  - Pain [Unknown]
  - Abdominal pain [Recovered/Resolved]
  - Discomfort [Unknown]
  - Rash [Unknown]
  - Nausea [Recovered/Resolved]
